FAERS Safety Report 17800995 (Version 7)
Quarter: 2020Q4

REPORT INFORMATION
  Report Type: Spontaneous
  Country: US (occurrence: US)
  Receive Date: 20200519
  Receipt Date: 20201030
  Transmission Date: 20210113
  Serious: Yes (Other)
  Sender: FDA-Public Use
  Company Number: US-AKCEA THERAPEUTICS-2020IS001188

PATIENT
  Age: 45 Year
  Sex: Male

DRUGS (2)
  1. ISSD (INTEGRATED SYRINGE SAFETY DEVICE) [Suspect]
     Active Substance: DEVICE
  2. TEGSEDI [Suspect]
     Active Substance: INOTERSEN SODIUM
     Indication: HEREDITARY NEUROPATHIC AMYLOIDOSIS
     Route: 058

REACTIONS (7)
  - Urine protein/creatinine ratio increased [Unknown]
  - Bacterial test positive [Unknown]
  - Platelet count decreased [Unknown]
  - White blood cells urine positive [Unknown]
  - Urine abnormality [Unknown]
  - Urinary tract infection [Unknown]
  - Urine leukocyte esterase positive [Unknown]

NARRATIVE: CASE EVENT DATE: 20200829
